FAERS Safety Report 5734902-0 (Version None)
Quarter: 2008Q2

REPORT INFORMATION
  Report Type: 
  Country: None (occurrence: None)
  Receive Date: 20080512
  Receipt Date: 20080509
  Transmission Date: 20081010
  Serious: Yes (Hospitalization)
  Sender: FDA-Public Use
  Company Number: B0519744A

PATIENT
  Age: 60 Year
  Sex: Female
  Weight: 78.2 kg

DRUGS (2)
  1. AUGMENTIN '125' [Suspect]
     Dosage: 1G PER DAY
     Route: 048
     Dates: start: 20080206, end: 20080212
  2. ELTROXIN [Concomitant]
     Indication: HYPOTHYROIDISM
     Dosage: .15MG PER DAY
     Route: 048

REACTIONS (9)
  - ALANINE AMINOTRANSFERASE INCREASED [None]
  - ANOREXIA [None]
  - ASPARTATE AMINOTRANSFERASE INCREASED [None]
  - CHROMATURIA [None]
  - FAECES DISCOLOURED [None]
  - JAUNDICE [None]
  - LISTLESS [None]
  - NAUSEA [None]
  - PRURITUS [None]
